FAERS Safety Report 9596982 (Version 2)
Quarter: 2013Q4

REPORT INFORMATION
  Report Type: Spontaneous
  Country: PL (occurrence: PL)
  Receive Date: 20131004
  Receipt Date: 20131014
  Transmission Date: 20140711
  Serious: Yes (Death)
  Sender: FDA-Public Use
  Company Number: PL-BAXTER-2013BAX037697

PATIENT
  Age: 84 Year
  Sex: Female

DRUGS (1)
  1. DIANEAL PD4 (GLUKOZA 1,36%) ZESTAW DO DIALIZY OTRZEWNOWEJ [Suspect]
     Indication: PERITONEAL DIALYSIS
     Route: 033

REACTIONS (1)
  - Cardiovascular disorder [Fatal]
